FAERS Safety Report 5074421-0 (Version None)
Quarter: 2006Q3

REPORT INFORMATION
  Report Type: 
  Country: None (occurrence: None)
  Receive Date: 20060803
  Receipt Date: 20060728
  Transmission Date: 20061208
  Serious: Yes (Disabling)
  Sender: FDA-Public Use
  Company Number: HQWYE471028JUL06

PATIENT
  Age: 21 Year
  Sex: Female

DRUGS (1)
  1. CEFSPAN (CEFIXIME, SUSPENSION) [Suspect]
     Dosage: ORAL
     Route: 048
     Dates: start: 19890301, end: 19890301

REACTIONS (1)
  - OCULOMUCOCUTANEOUS SYNDROME [None]
